FAERS Safety Report 5945505-7 (Version None)
Quarter: 2008Q4

REPORT INFORMATION
  Report Type: 
  Country: None (occurrence: None)
  Receive Date: 20081105
  Receipt Date: 20081020
  Transmission Date: 20090506
  Serious: Yes (Disabling)
  Sender: FDA-Public Use
  Company Number: 2008BI028114

PATIENT
  Age: 45 Year
  Sex: Female
  Weight: 95 kg

DRUGS (4)
  1. TYSABRI [Suspect]
     Indication: MULTIPLE SCLEROSIS
     Dosage: 300 MG; QM; IV
     Route: 042
     Dates: start: 20080702, end: 20080926
  2. VENLAFAXINE HCL [Concomitant]
  3. REBIF [Concomitant]
  4. COPAXONE [Concomitant]

REACTIONS (1)
  - PURPURA [None]
